FAERS Safety Report 8483356-2 (Version None)
Quarter: 2012Q3

REPORT INFORMATION
  Report Type: 
  Country: None (occurrence: None)
  Receive Date: 20120702
  Receipt Date: 20120627
  Transmission Date: 20120928
  Serious: Yes (Hospitalization, Other)
  Sender: FDA-Public Use
  Company Number: US-BAXTER-2012BAX008570

PATIENT
  Sex: Female

DRUGS (2)
  1. DIANEAL [Suspect]
     Indication: PERITONEAL DIALYSIS
     Route: 033
     Dates: start: 20110223
  2. DIANEAL [Suspect]
     Route: 033
     Dates: start: 20110223

REACTIONS (4)
  - DEEP VEIN THROMBOSIS [None]
  - PERITONITIS [None]
  - ROAD TRAFFIC ACCIDENT [None]
  - CHOLELITHIASIS [None]
